FAERS Safety Report 5157092-4 (Version None)
Quarter: 2006Q4

REPORT INFORMATION
  Report Type: 
  Country: None (occurrence: None)
  Receive Date: 20061127
  Receipt Date: 20060105
  Transmission Date: 20070319
  Serious: Yes (Death, Other)
  Sender: FDA-Public Use
  Company Number: US-ELI_LILLY_AND_COMPANY-US200601000826

PATIENT
  Age: 30 Year
  Sex: Male
  Weight: 113.38 kg

DRUGS (1)
  1. ZYPREXA [Suspect]
     Indication: DEPRESSION
     Dates: start: 20010101

REACTIONS (4)
  - DEATH [None]
  - DIABETES MELLITUS [None]
  - KETOACIDOSIS [None]
  - METABOLIC DISORDER [None]
